FAERS Safety Report 8427327-0 (Version None)
Quarter: 2012Q2

REPORT INFORMATION
  Report Type: 
  Country: None (occurrence: None)
  Receive Date: 20120323
  Receipt Date: 20110325
  Transmission Date: 20120825
  Serious: Yes (Life-Threatening)
  Sender: FDA-Public Use
  Company Number: 163-21880-11021703

PATIENT
  Age: 70 Year
  Sex: Male

DRUGS (6)
  1. COUMADIN [Concomitant]
  2. REVLIMID [Suspect]
     Indication: ACUTE MYELOID LEUKAEMIA
     Dosage: 10 MG, DAILY FOR 21 DAYS, PO
     Route: 048
     Dates: start: 20101206, end: 20110303
  3. ASPIRIN [Concomitant]
  4. DILTIAZEM [Concomitant]
  5. CARVEDILOL [Concomitant]
  6. PRAVASTATIN [Concomitant]

REACTIONS (3)
  - PLATELET COUNT DECREASED [None]
  - ACUTE MYELOID LEUKAEMIA RECURRENT [None]
  - DRUG INEFFECTIVE [None]
